FAERS Safety Report 24146690 (Version 1)
Quarter: 2024Q3

REPORT INFORMATION
  Report Type: Spontaneous
  Country: US (occurrence: US)
  Receive Date: 20240729
  Receipt Date: 20240729
  Transmission Date: 20241016
  Serious: No
  Sender: Haleon PLC
  Company Number: US-HALEON-2189188

PATIENT
  Age: 65 Year
  Sex: Female

DRUGS (1)
  1. FLONASE SENSIMIST ALLERGY RELIEF [Suspect]
     Active Substance: FLUTICASONE FUROATE
     Indication: Sinus disorder
     Dosage: EXPDATE:20261130 ; 1 SPRAY
     Dates: start: 20240720, end: 20240724

REACTIONS (2)
  - Product use in unapproved indication [Unknown]
  - Drug ineffective for unapproved indication [Unknown]

NARRATIVE: CASE EVENT DATE: 20240720
